FAERS Safety Report 8491240-3 (Version None)
Quarter: 2012Q3

REPORT INFORMATION
  Report Type: 
  Country: None (occurrence: None)
  Receive Date: 20120706
  Receipt Date: 20120629
  Transmission Date: 20120928
  Serious: Yes (Other)
  Sender: FDA-Public Use
  Company Number: PHEH2012US012525

PATIENT
  Sex: Male

DRUGS (6)
  1. CARBAMAZEPINE [Suspect]
  2. ANTIBIOTICS [Concomitant]
  3. NEXIUM [Concomitant]
  4. TEGRETOL [Suspect]
     Dosage: 100 MG, UNK
  5. ATIVAN [Concomitant]
  6. TEGRETOL [Suspect]

REACTIONS (5)
  - MALAISE [None]
  - NAUSEA [None]
  - BLOOD SODIUM DECREASED [None]
  - CONVULSION [None]
  - WRONG TECHNIQUE IN DRUG USAGE PROCESS [None]
